FAERS Safety Report 6735275-7 (Version None)
Quarter: 2010Q2

REPORT INFORMATION
  Report Type: 
  Country: None (occurrence: None)
  Receive Date: 20100521
  Receipt Date: 20100512
  Transmission Date: 20101027
  Serious: Yes (Other)
  Sender: FDA-Public Use
  Company Number: US-JNJFOC-20100504877

PATIENT
  Sex: Female
  Weight: 73.63 kg

DRUGS (10)
  1. TOPAMAX [Suspect]
     Indication: CONVULSION
     Route: 048
  2. TOPAMAX [Suspect]
     Dosage: 1 WEEK
     Route: 048
  3. MULTAQ [Interacting]
     Indication: ATRIAL FIBRILLATION
     Route: 048
  4. KEPPRA [Interacting]
     Indication: DRUG USE FOR UNKNOWN INDICATION
     Route: 048
  5. KEPPRA [Interacting]
     Route: 048
  6. COUMADIN [Concomitant]
     Indication: ATRIAL FIBRILLATION
     Route: 065
  7. CLARINEX [Concomitant]
     Indication: HYPERSENSITIVITY
     Route: 065
  8. FUROSEMIDE [Concomitant]
     Indication: OEDEMA
     Route: 065
  9. MULTI-VITAMINS [Concomitant]
     Indication: VITAMIN SUPPLEMENTATION
     Route: 065
  10. K-DUR [Concomitant]
     Route: 065

REACTIONS (6)
  - APATHY [None]
  - DEPRESSION [None]
  - DRUG INTERACTION [None]
  - IMMOBILE [None]
  - IRRITABILITY [None]
  - PERSONALITY CHANGE [None]
